FAERS Safety Report 5071222-4 (Version None)
Quarter: 2006Q3

REPORT INFORMATION
  Report Type: 
  Country: None (occurrence: None)
  Receive Date: 20060803
  Receipt Date: 20060803
  Transmission Date: 20061208
  Serious: Yes (Death)
  Sender: FDA-Public Use
  Company Number: None

PATIENT
  Age: 54 Year
  Sex: Male
  Weight: 83.9154 kg

DRUGS (2)
  1. CYPHER STENTS [Suspect]
     Indication: CORONARY ARTERY DISEASE
     Dates: start: 20050902, end: 20050903
  2. CYPHER STENTS [Suspect]
     Indication: CORONARY ARTERY STENOSIS
     Dates: start: 20050902, end: 20050903

REACTIONS (3)
  - MYOCARDIAL INFARCTION [None]
  - POST PROCEDURAL COMPLICATION [None]
  - STENT OCCLUSION [None]
